FAERS Safety Report 10695687 (Version 2)
Quarter: 2015Q1

REPORT INFORMATION
  Report Type: Spontaneous
  Country: IT (occurrence: JP)
  Receive Date: 20150107
  Receipt Date: 20150127
  Transmission Date: 20150721
  Serious: Yes (Life-Threatening, Hospitalization)
  Sender: FDA-Public Use
  Company Number: IT-SIGMA-TAU US-2014STPI000746

PATIENT
  Age: 5 Day
  Sex: Female
  Weight: 2.8 kg

DRUGS (9)
  1. VITAMIN PREPARATION COMPOUND [Concomitant]
     Active Substance: VITAMINS
     Indication: PRODUCT USED FOR UNKNOWN INDICATION
  2. METRONIDAZOLE AMEL [Concomitant]
     Indication: PRODUCT USED FOR UNKNOWN INDICATION
     Route: 065
     Dates: start: 20141208
  3. LACTULOSE KOWA SOYAKU [Concomitant]
     Indication: PRODUCT USED FOR UNKNOWN INDICATION
     Route: 065
     Dates: start: 20141208
  4. CARNITOR [Suspect]
     Active Substance: LEVOCARNITINE
     Indication: CARNITINE DEFICIENCY
     Dosage: 100 MG, TID
     Route: 042
     Dates: start: 20141204, end: 201412
  5. GLUCOSE [Concomitant]
     Active Substance: DEXTROSE
     Indication: CARNITINE DEFICIENCY
     Dosage: UNK
  6. BIOTININ [Concomitant]
     Indication: PRODUCT USED FOR UNKNOWN INDICATION
     Dosage: UNK UNK, UNK
     Route: 065
     Dates: start: 20141205, end: 20141213
  7. CARNITOR [Suspect]
     Active Substance: LEVOCARNITINE
     Dosage: 100 MG, QD
     Route: 042
     Dates: start: 201412, end: 20141214
  8. RIBOFLAVIN SODIUM PHOSPHATE [Concomitant]
     Indication: PRODUCT USED FOR UNKNOWN INDICATION
     Route: 065
     Dates: start: 20141205, end: 20141213
  9. THIAMINE DISULFIDE PHOSPHATE [Concomitant]
     Indication: PRODUCT USED FOR UNKNOWN INDICATION
     Dosage: UNK UNK, UNK
     Route: 065
     Dates: start: 20141205, end: 20141213

REACTIONS (4)
  - Poor sucking reflex [None]
  - Rhabdomyolysis [Recovered/Resolved]
  - Respiratory failure [None]
  - Asthenia [None]

NARRATIVE: CASE EVENT DATE: 20141208
